FAERS Safety Report 15088670 (Version 1)
Quarter: 2018Q2

REPORT INFORMATION
  Report Type: Spontaneous
  Country: US (occurrence: US)
  Receive Date: 20180629
  Receipt Date: 20180629
  Transmission Date: 20180711
  Serious: No
  Sender: FDA-Public Use
  Company Number: US-PFIZER INC-2018260951

PATIENT
  Age: 69 Year
  Sex: Female

DRUGS (2)
  1. ALDACTONE [Suspect]
     Active Substance: SPIRONOLACTONE
     Indication: HYPERTRICHOSIS
     Dosage: 100 MG, 2X/DAY (50 MG DOSE TWO PILLS TWICE A DAY)
     Route: 048
  2. ALDACTONE [Suspect]
     Active Substance: SPIRONOLACTONE
     Dosage: 100 MG, DAILY (50 MG EACH TABLET TWO A DAY BY MOUTH)

REACTIONS (4)
  - Feeling abnormal [Unknown]
  - Product use in unapproved indication [Unknown]
  - Vertigo [Unknown]
  - Blood potassium increased [Unknown]
